FAERS Safety Report 9457885 (Version 1)
Quarter: 2013Q3

REPORT INFORMATION
  Report Type: Spontaneous
  Country: US (occurrence: US)
  Receive Date: 20130814
  Receipt Date: 20130814
  Transmission Date: 20140515
  Serious: No
  Sender: FDA-Public Use
  Company Number: US-BAYER-2013-097972

PATIENT
  Sex: Female

DRUGS (1)
  1. SKYLA [Suspect]
     Dosage: 13.5 MG, UNK
     Route: 015
     Dates: start: 201307

REACTIONS (3)
  - Abdominal pain [None]
  - Vaginal discharge [None]
  - Pain [None]
